FAERS Safety Report 6186292-X (Version None)
Quarter: 2009Q2

REPORT INFORMATION
  Report Type: 
  Country: None (occurrence: None)
  Receive Date: 20090507
  Receipt Date: 20090507
  Transmission Date: 20091009
  Serious: Yes (Life-Threatening, Hospitalization, Disabling)
  Sender: FDA-Public Use
  Company Number: None

PATIENT
  Sex: Female
  Weight: 86.1834 kg

DRUGS (1)
  1. MAGNEVIST [Suspect]
     Indication: HEADACHE
     Dosage: 20 ML ONCE IV BOLUS
     Route: 040
     Dates: start: 20090402

REACTIONS (4)
  - CARDIO-RESPIRATORY ARREST [None]
  - DYSPNOEA [None]
  - INFUSION RELATED REACTION [None]
  - UNRESPONSIVE TO STIMULI [None]
